FAERS Safety Report 5591240-7 (Version None)
Quarter: 2008Q1

REPORT INFORMATION
  Report Type: 
  Country: None (occurrence: None)
  Receive Date: 20080110
  Receipt Date: 20080110
  Transmission Date: 20080703
  Serious: No
  Sender: FDA-Public Use
  Company Number: None

PATIENT
  Age: 38 Year
  Sex: Female
  Weight: 72.5755 kg

DRUGS (1)
  1. TODAY SPONGE     SYNOVA HEALTHCARE [Suspect]
     Indication: CONTRACEPTION
     Dates: start: 20071204, end: 20071204

REACTIONS (5)
  - DEVICE FAILURE [None]
  - DEVICE INEFFECTIVE [None]
  - DRUG EXPOSURE DURING PREGNANCY [None]
  - PHARMACEUTICAL PRODUCT COMPLAINT [None]
  - PREGNANCY WITH CONTRACEPTIVE DEVICE [None]
